FAERS Safety Report 16904913 (Version 1)
Quarter: 2019Q4

REPORT INFORMATION
  Report Type: Spontaneous
  Country: FR (occurrence: FR)
  Receive Date: 20191010
  Receipt Date: 20191010
  Transmission Date: 20200122
  Serious: Yes (Other)
  Sender: FDA-Public Use
  Company Number: FR-GLAXOSMITHKLINE-FR2019180183

PATIENT
  Age: 60 Year
  Sex: Female
  Weight: 99 kg

DRUGS (2)
  1. CEFUROXIME AXETIL. [Suspect]
     Active Substance: CEFUROXIME AXETIL
     Indication: BRONCHIAL DISORDER
     Dosage: 500 MG, QD
     Route: 048
     Dates: start: 201804, end: 201805
  2. AMOXICILLINE [Suspect]
     Active Substance: AMOXICILLIN
     Indication: BRONCHIAL DISORDER
     Dosage: UNK
     Route: 048
     Dates: start: 201803, end: 201804

REACTIONS (2)
  - Clostridium difficile colitis [Recovered/Resolved]
  - Clostridium test positive [Recovered/Resolved]

NARRATIVE: CASE EVENT DATE: 20180601
